FAERS Safety Report 5712774-8 (Version None)
Quarter: 2008Q2

REPORT INFORMATION
  Report Type: 
  Country: None (occurrence: None)
  Receive Date: 20080421
  Receipt Date: 20080421
  Transmission Date: 20081010
  Serious: Yes (Death)
  Sender: FDA-Public Use
  Company Number: None

PATIENT
  Sex: Female
  Weight: 19.7 kg

DRUGS (7)
  1. BLEOMYCIN SULFATE [Suspect]
     Dosage: 12 UNIT
  2. CYCLOPHOSPHAMIDE [Suspect]
     Dosage: 635 MG
  3. DOXORUBICIN HYDROCHLORIDE [Suspect]
     Dosage: 40 MG
  4. ETOPOSIDE [Suspect]
     Dosage: 300 MG
  5. G-CSF (FILGRASTIM, AMGEN) [Suspect]
     Dosage: 700 MCG
  6. PREDNISONE [Suspect]
     Dosage: 210 MG
  7. VINCRISTINE SULFATE [Suspect]
     Dosage: 2.5 MG

REACTIONS (4)
  - ADRENAL CORTEX NECROSIS [None]
  - BACTERIAL SEPSIS [None]
  - IMMUNE SYSTEM DISORDER [None]
  - PULMONARY HAEMORRHAGE [None]
